FAERS Safety Report 8032714-9 (Version None)
Quarter: 2011Q4

REPORT INFORMATION
  Report Type: 
  Country: None (occurrence: None)
  Receive Date: 20111228
  Receipt Date: 20111214
  Transmission Date: 20120403
  Serious: Yes (Congenital Anomaly)
  Sender: FDA-Public Use
  Company Number: 2011SP058465

PATIENT
  Age: 1 Day

DRUGS (1)
  1. TEMODAL [Suspect]
     Indication: MATERNAL EXPOSURE DURING PREGNANCY
     Dosage: UNK; TRPL
     Route: 064

REACTIONS (3)
  - CONGENITAL ANOMALY [None]
  - MICROENCEPHALY [None]
  - MATERNAL DRUGS AFFECTING FOETUS [None]
